FAERS Safety Report 8799108 (Version 1)
Quarter: 2012Q4

REPORT INFORMATION
  Report Type: Spontaneous
  Country: US (occurrence: None)
  Receive Date: 20120918
  Receipt Date: 20120918
  Transmission Date: 20130627
  Serious: Yes (Other)
  Sender: FDA-Public Use
  Company Number: None

PATIENT
  Age: 49 Year
  Sex: Female
  Weight: 53.98 kg

DRUGS (6)
  1. VALACYCLOVIR [Suspect]
     Indication: HERPES SIMPLEX
     Dosage: 400 mg 1 qd po
     Route: 048
     Dates: start: 20110210, end: 20110307
  2. VALACYCLOVIR [Suspect]
     Indication: GENITAL HERPES
     Dosage: 400 mg 1 qd po
     Route: 048
     Dates: start: 20110210, end: 20110307
  3. DILTIAZEM [Concomitant]
  4. FENTANYL [Concomitant]
  5. HYDROXYCHLOROQUINE [Concomitant]
  6. NYSTATIN [Concomitant]

REACTIONS (2)
  - Nausea [None]
  - Vomiting [None]
